FAERS Safety Report 4691192-8 (Version None)
Quarter: 2005Q2

REPORT INFORMATION
  Report Type: 
  Country: None (occurrence: None)
  Receive Date: 20050615
  Receipt Date: 20050613
  Transmission Date: 20051028
  Serious: Yes (Life-Threatening, Hospitalization, Disabling, Other)
  Sender: FDA-Public Use
  Company Number: PHFR2005GB02152

PATIENT
  Age: 73 Year
  Sex: Male

DRUGS (6)
  1. VALSARTAN [Suspect]
     Indication: BLOOD PRESSURE INCREASED
     Dosage: 160MG/DAY
     Route: 048
     Dates: end: 20050112
  2. FRUSEMIDE [Concomitant]
     Dosage: 40MG/DAY
     Route: 048
     Dates: start: 20050101, end: 20050108
  3. FLUCLOXACILLIN [Concomitant]
     Dosage: 250 MG, QID
     Route: 048
     Dates: start: 20050101, end: 20050108
  4. PRAZOSIN [Concomitant]
     Dosage: 2 MG, BID
     Route: 048
     Dates: end: 20050112
  5. INDAPAMIDE [Concomitant]
     Indication: BLOOD PRESSURE INCREASED
     Dosage: 2.5MG/DAY
     Route: 048
     Dates: end: 20050112
  6. ATENOLOL [Concomitant]
     Indication: BLOOD PRESSURE INCREASED
     Route: 048
     Dates: end: 20050108

REACTIONS (4)
  - ACUTE GENERALISED EXANTHEMATOUS PUSTULOSIS [None]
  - CARDIAC FAILURE [None]
  - HYPOTHERMIA [None]
  - RENAL FAILURE [None]
